FAERS Safety Report 12289766 (Version 1)
Quarter: 2016Q2

REPORT INFORMATION
  Report Type: Spontaneous
  Country: US (occurrence: None)
  Receive Date: 20160420
  Receipt Date: 20160420
  Transmission Date: 20160815
  Serious: Yes (Disabling)
  Sender: FDA-Public Use
  Company Number: None

PATIENT
  Age: 49 Year
  Sex: Female
  Weight: 68.04 kg

DRUGS (4)
  1. BUPROPION HCL XL 150 MG, 150 MG [Suspect]
     Active Substance: BUPROPION HYDROCHLORIDE
     Indication: DEPRESSION
     Route: 048
     Dates: start: 20150801, end: 20160301
  2. ZOLOFT [Concomitant]
     Active Substance: SERTRALINE HYDROCHLORIDE
  3. MULTIVITAMIN (CENTRUM SILVER) [Concomitant]
  4. CLONAZPAM [Concomitant]

REACTIONS (5)
  - Depression [None]
  - Disease recurrence [None]
  - Product substitution issue [None]
  - Suicidal ideation [None]
  - Abdominal pain upper [None]

NARRATIVE: CASE EVENT DATE: 20160408
